FAERS Safety Report 25885989 (Version 1)
Quarter: 2025Q4

REPORT INFORMATION
  Report Type: Spontaneous
  Country: US (occurrence: None)
  Receive Date: 20251006
  Receipt Date: 20251006
  Transmission Date: 20260117
  Serious: Yes (Hospitalization)
  Sender: FDA-CTU
  Company Number: None

PATIENT
  Age: 60 Year
  Sex: Female
  Weight: 114.4 kg

DRUGS (8)
  1. CYCLOPHOSPHAMIDE [Suspect]
     Active Substance: CYCLOPHOSPHAMIDE
     Dosage: OTHER FREQUENCY : 680 MG, ROUNDED FROM 681 = 300 MG/M2;?
     Dates: end: 20250912
  2. CYTARABINE [Suspect]
     Active Substance: CYTARABINE
     Dates: end: 20250911
  3. DEXAMETHASONE [Suspect]
     Active Substance: DEXAMETHASONE
     Dosage: OTHER FREQUENCY : 20MG IV DAYS 1-4 20MG PO DAYS 11-14;?
     Dates: end: 20250921
  4. DOXORUBICIN HYDROCHLORIDE [Suspect]
     Active Substance: DOXORUBICIN HYDROCHLORIDE
     Dates: end: 20250913
  5. MESNA [Suspect]
     Active Substance: MESNA
     Dosage: OTHER FREQUENCY : 1360 MG, ROUNDED FROM 1,362 = 600 MG/M2;?
     Dates: end: 20250911
  6. METHOTREXATE [Suspect]
     Active Substance: METHOTREXATE
     Dates: end: 20250918
  7. PONATINIB [Suspect]
     Active Substance: PONATINIB
     Dates: end: 20250921
  8. VINCRISTINE SULFATE [Suspect]
     Active Substance: VINCRISTINE SULFATE
     Dosage: OTHER FREQUENCY : 2MG IV ON DAY 4 2MG IV ON DAY 11;?
     Dates: end: 20250918

REACTIONS (5)
  - Proctalgia [None]
  - Pyrexia [None]
  - Staphylococcus test positive [None]
  - Anorectal cellulitis [None]
  - Therapy interrupted [None]

NARRATIVE: CASE EVENT DATE: 20250922
